FAERS Safety Report 7322029-6 (Version None)
Quarter: 2011Q1

REPORT INFORMATION
  Report Type: 
  Country: None (occurrence: None)
  Receive Date: 20110228
  Receipt Date: 20110217
  Transmission Date: 20110831
  Serious: Yes (Death, Other)
  Sender: FDA-Public Use
  Company Number: GR-BAXTER-2011BH004284

PATIENT
  Age: 22 Year
  Sex: Male

DRUGS (12)
  1. PACLITAXEL [Suspect]
     Indication: NEOPLASM RECURRENCE
     Route: 065
  2. HUMAN STEM CELL INFUSION [Suspect]
     Indication: NEOPLASM RECURRENCE
     Route: 065
  3. ACTINOMYCIN D [Concomitant]
     Indication: PRODUCT USED FOR UNKNOWN INDICATION
     Route: 065
  4. VINCRISTINE [Concomitant]
     Indication: PRODUCT USED FOR UNKNOWN INDICATION
     Route: 065
  5. CARBOPLATIN [Suspect]
     Indication: NEOPLASM RECURRENCE
     Route: 065
  6. TOPOTECAN [Suspect]
     Indication: NEOPLASM RECURRENCE
     Route: 065
  7. IFOSFAMIDE [Suspect]
     Indication: NEOPLASM RECURRENCE
     Route: 065
  8. CYCLOPHOSPHAMIDE [Suspect]
     Indication: NEOPLASM RECURRENCE
     Route: 065
  9. NEUPOGEN [Suspect]
     Indication: NEOPLASM RECURRENCE
     Route: 065
  10. BEVACIZUMAB [Suspect]
     Indication: NEOPLASM RECURRENCE
     Route: 065
  11. ETOPOSIDE [Suspect]
     Indication: NEOPLASM RECURRENCE
     Route: 065
  12. MELPHALAN HYDROCHLORIDE [Suspect]
     Indication: NEOPLASM RECURRENCE
     Route: 065

REACTIONS (7)
  - INTESTINAL OBSTRUCTION [None]
  - RENAL IMPAIRMENT [None]
  - ANAEMIA [None]
  - GASTROINTESTINAL TOXICITY [None]
  - NEOPLASM RECURRENCE [None]
  - EPISTAXIS [None]
  - FEBRILE NEUTROPENIA [None]
